FAERS Safety Report 7237355-9 (Version None)
Quarter: 2011Q1

REPORT INFORMATION
  Report Type: 
  Country: None (occurrence: None)
  Receive Date: 20110121
  Receipt Date: 20110112
  Transmission Date: 20110831
  Serious: Yes (Other)
  Sender: FDA-Public Use
  Company Number: JP-BRISTOL-MYERS SQUIBB COMPANY-14970917

PATIENT
  Age: 31 Year
  Sex: Female
  Weight: 52 kg

DRUGS (2)
  1. ABILIFY [Suspect]
     Indication: SCHIZOPHRENIA
     Dosage: ABILIFY TABS 6MG.
     Route: 048
     Dates: start: 20080411
  2. SOLANAX [Concomitant]
     Dosage: TAB. 10 AUG2010 0.4 MG AS NEED
     Dates: start: 20100101

REACTIONS (3)
  - RESTLESSNESS [None]
  - PREMATURE LABOUR [None]
  - PREGNANCY [None]
